FAERS Safety Report 24119384 (Version 1)
Quarter: 2024Q3

REPORT INFORMATION
  Report Type: Spontaneous
  Country: GR (occurrence: GR)
  Receive Date: 20240722
  Receipt Date: 20240722
  Transmission Date: 20241017
  Serious: Yes (Other)
  Sender: ROCHE
  Company Number: GR-ROCHE-10000031358

PATIENT
  Age: 57 Year
  Sex: Male

DRUGS (2)
  1. ALECTINIB [Suspect]
     Active Substance: ALECTINIB
     Indication: Lung neoplasm malignant
     Route: 065
  2. LORLATINIB [Concomitant]
     Active Substance: LORLATINIB
     Route: 065

REACTIONS (1)
  - Disease progression [Unknown]
